FAERS Safety Report 5960888-X (Version None)
Quarter: 2008Q4

REPORT INFORMATION
  Report Type: 
  Country: None (occurrence: None)
  Receive Date: 20081119
  Receipt Date: 20081106
  Transmission Date: 20090506
  Serious: Yes (Hospitalization, Other)
  Sender: FDA-Public Use
  Company Number: PHHY2008GB27370

PATIENT
  Age: 33 Year
  Sex: Female

DRUGS (5)
  1. METOCLOPRAMIDE [Suspect]
     Indication: DYSPEPSIA
     Dosage: 60 MG, ORAL
     Route: 048
  2. METOCLOPRAMIDE [Suspect]
     Indication: NAUSEA
     Dosage: 60 MG, ORAL
     Route: 048
  3. PREDNISONE [Suspect]
     Indication: WEGENER'S GRANULOMATOSIS
     Dosage: 30 MG, ORAL
     Route: 048
  4. BINOVUM (ETHINYLESTRADIOL, NORETHISTERONE) [Concomitant]
  5. OMEPRAZOLE [Concomitant]

REACTIONS (2)
  - DRUG INTERACTION [None]
  - DYSTONIA [None]
